FAERS Safety Report 15943415 (Version 1)
Quarter: 2019Q1

REPORT INFORMATION
  Report Type: Spontaneous
  Country: US (occurrence: US)
  Receive Date: 20190122
  Receipt Date: 20190122
  Transmission Date: 20190417
  Serious: Yes (Death)
  Sender: FDA-Public Use
  Company Number: None

PATIENT
  Age: 73 Year
  Sex: Male
  Weight: 72.57 kg

DRUGS (1)
  1. PREDNISONE 20MG [Suspect]
     Active Substance: PREDNISONE
     Indication: BACK PAIN
     Route: 048
     Dates: start: 20181205, end: 20181206

REACTIONS (2)
  - Psychotic disorder [None]
  - Completed suicide [None]

NARRATIVE: CASE EVENT DATE: 20181207
